FAERS Safety Report 23676917 (Version 2)
Quarter: 2024Q2

REPORT INFORMATION
  Report Type: Spontaneous
  Country: JP (occurrence: JP)
  Receive Date: 20240327
  Receipt Date: 20240404
  Transmission Date: 20240716
  Serious: Yes (Other)
  Sender: FDA-Public Use
  Company Number: JP-ferring-EVA202400434FERRINGPH

PATIENT

DRUGS (3)
  1. DESMOPRESSIN ACETATE [Suspect]
     Active Substance: DESMOPRESSIN ACETATE
     Indication: Diabetes insipidus
     Dosage: 60 UG, 2 TIMES DAILY,
     Route: 048
     Dates: end: 20240315
  2. NUCALA [Concomitant]
     Active Substance: MEPOLIZUMAB
     Indication: Hypersensitivity vasculitis
     Route: 065
  3. UNSPECIFIED INGREDIENT [Concomitant]
     Active Substance: UNSPECIFIED INGREDIENT
     Indication: Hypersensitivity vasculitis
     Dosage: PULSE THERAPY

REACTIONS (1)
  - Hyponatraemia [Recovered/Resolved]
